FAERS Safety Report 16022281 (Version 1)
Quarter: 2019Q1

REPORT INFORMATION
  Report Type: Spontaneous
  Country: FR (occurrence: FR)
  Receive Date: 20190301
  Receipt Date: 20190301
  Transmission Date: 20190418
  Serious: Yes (Hospitalization)
  Sender: FDA-Public Use
  Company Number: FR-ZYDUS-034158

PATIENT
  Age: 47 Year
  Sex: Female
  Weight: 81.6 kg

DRUGS (3)
  1. OPTIMIZETTE [Concomitant]
     Active Substance: DESOGESTREL
  2. ARIPIPRAZOLE. [Suspect]
     Active Substance: ARIPIPRAZOLE
     Indication: PRODUCT USED FOR UNKNOWN INDICATION
     Route: 048
     Dates: start: 2015
  3. ROXITHROMYCIN [Concomitant]
     Active Substance: ROXITHROMYCIN

REACTIONS (3)
  - Congestive cardiomyopathy [Not Recovered/Not Resolved]
  - Cardiac failure [Recovering/Resolving]
  - Ejection fraction decreased [Recovering/Resolving]

NARRATIVE: CASE EVENT DATE: 20190108
